FAERS Safety Report 5186339-3 (Version None)
Quarter: 2006Q4

REPORT INFORMATION
  Report Type: 
  Country: None (occurrence: None)
  Receive Date: 20061220
  Receipt Date: 20061205
  Transmission Date: 20070319
  Serious: Yes (Other)
  Sender: FDA-Public Use
  Company Number: CA-AMGEN-US204302

PATIENT

DRUGS (1)
  1. ENBREL [Suspect]
     Indication: UVEITIS
     Route: 058

REACTIONS (1)
  - GLAUCOMA [None]
